FAERS Safety Report 15465544 (Version 1)
Quarter: 2018Q4

REPORT INFORMATION
  Report Type: Spontaneous
  Country: IN (occurrence: IN)
  Receive Date: 20181004
  Receipt Date: 20181004
  Transmission Date: 20190204
  Serious: Yes (Other)
  Sender: FDA-Public Use
  Company Number: IN-TELIGENT, INC-IGIL20180565

PATIENT
  Age: 36 Year
  Sex: Female

DRUGS (1)
  1. TRIAMCINOLONE ACETONIDE. [Suspect]
     Active Substance: TRIAMCINOLONE ACETONIDE
     Indication: ORAL LICHEN PLANUS
     Dosage: UNKNOWN
     Route: 048

REACTIONS (3)
  - Vision blurred [Recovering/Resolving]
  - Chorioretinopathy [Recovering/Resolving]
  - Incorrect route of product administration [None]
